FAERS Safety Report 4937492-5 (Version None)
Quarter: 2006Q1

REPORT INFORMATION
  Report Type: 
  Country: None (occurrence: None)
  Receive Date: 20060309
  Receipt Date: 20060223
  Transmission Date: 20060701
  Serious: Yes (Hospitalization, Other)
  Sender: FDA-Public Use
  Company Number: HQWYE994024FEB06

PATIENT
  Age: 43 Year
  Sex: Male
  Weight: 86 kg

DRUGS (5)
  1. MYLOTARG [Suspect]
     Indication: ACUTE MYELOID LEUKAEMIA
     Dosage: 18 MG 1X PER 1 DAY, INTRAVENOUS
     Route: 042
     Dates: start: 20060131, end: 20060131
  2. URSODIOL (URSODEOXYCHOLIC ACID) [Concomitant]
  3. NORTRIPTYLINE HCL [Concomitant]
  4. FLUCONAZOLE (FLUNCONAZOLE) [Concomitant]
  5. CIPROFLOXACIN [Concomitant]

REACTIONS (2)
  - PORTAL HYPERTENSION [None]
  - VENOOCCLUSIVE LIVER DISEASE [None]
